FAERS Safety Report 7657166-X (Version None)
Quarter: 2011Q3

REPORT INFORMATION
  Report Type: 
  Country: None (occurrence: None)
  Receive Date: 20110804
  Receipt Date: 20101008
  Transmission Date: 20111222
  Serious: Yes (Other)
  Sender: FDA-Public Use
  Company Number: PHHY2010TW92351

PATIENT

DRUGS (1)
  1. GLEEVEC [Suspect]
     Dosage: 2 DF, BID
     Dates: start: 20101008

REACTIONS (2)
  - DEMENTIA [None]
  - GAIT DISTURBANCE [None]
